FAERS Safety Report 5095377-0 (Version None)
Quarter: 2006Q3

REPORT INFORMATION
  Report Type: 
  Country: None (occurrence: None)
  Receive Date: 20060731
  Receipt Date: 20060427
  Transmission Date: 20061208
  Serious: No
  Sender: FDA-Public Use
  Company Number: 2006PV012858

PATIENT
  Age: 62 Year
  Sex: Female
  Weight: 102.0593 kg

DRUGS (4)
  1. BYETTA [Suspect]
     Indication: DIABETES MELLITUS NON-INSULIN-DEPENDENT
     Dosage: SEE IMAGE
     Route: 058
     Dates: start: 20051101
  2. BYETTA [Suspect]
     Indication: DIABETES MELLITUS NON-INSULIN-DEPENDENT
     Dosage: SEE IMAGE
     Route: 058
     Dates: start: 20060401
  3. METFORMIN [Concomitant]
  4. AMARYL [Concomitant]

REACTIONS (14)
  - ASTHENIA [None]
  - BACK PAIN [None]
  - CHILLS [None]
  - DECREASED APPETITE [None]
  - DIARRHOEA [None]
  - FATIGUE [None]
  - FEELING COLD [None]
  - FEELING HOT [None]
  - HOT FLUSH [None]
  - NAUSEA [None]
  - URINARY TRACT INFECTION [None]
  - VAGINAL PAIN [None]
  - VOMITING [None]
  - WEIGHT DECREASED [None]
